FAERS Safety Report 23621467 (Version 1)
Quarter: 2024Q1

REPORT INFORMATION
  Report Type: Report from Study
  Country: US (occurrence: None)
  Receive Date: 20240312
  Receipt Date: 20240312
  Transmission Date: 20240410
  Serious: Yes (Hospitalization)
  Sender: FDA-Public Use
  Company Number: 2024A053925

PATIENT
  Sex: Female

DRUGS (1)
  1. FARXIGA [Suspect]
     Active Substance: DAPAGLIFLOZIN PROPANEDIOL
     Dosage: UNKNOWN
     Route: 048

REACTIONS (6)
  - Fall [Unknown]
  - Visual impairment [Unknown]
  - Glaucoma [Unknown]
  - Blood glucose decreased [Unknown]
  - Diabetes mellitus [Unknown]
  - Ankle fracture [Unknown]
